FAERS Safety Report 9039407 (Version 1)
Quarter: 2013Q1

REPORT INFORMATION
  Report Type: Spontaneous
  Country: US (occurrence: None)
  Receive Date: 20130123
  Receipt Date: 20130123
  Transmission Date: 20140127
  Serious: No
  Sender: FDA-Public Use
  Company Number: None

PATIENT
  Age: 43 Year
  Sex: Female
  Weight: 53.52 kg

DRUGS (1)
  1. FLUOCINOLONE ACETONIDE [Suspect]
     Indication: PSORIASIS
     Route: 061
     Dates: start: 20130107, end: 20130114

REACTIONS (2)
  - Drug ineffective [None]
  - Product substitution issue [None]
